FAERS Safety Report 21889582 (Version 2)
Quarter: 2023Q1

REPORT INFORMATION
  Report Type: Spontaneous
  Country: HU (occurrence: HU)
  Receive Date: 20230120
  Receipt Date: 20230207
  Transmission Date: 20230418
  Serious: Yes (Other)
  Sender: FDA-Public Use
  Company Number: HU-002147023-NVSC2023HU009718

PATIENT
  Age: 2 Month
  Sex: Male
  Weight: 4.3 kg

DRUGS (3)
  1. ZOLGENSMA [Suspect]
     Active Substance: ONASEMNOGENE ABEPARVOVEC-XIOI
     Indication: Spinal muscular atrophy
     Dosage: 24.9 ML, ONCE/SINGLE (3X8.3 ML)
     Route: 042
     Dates: start: 20221230, end: 20221230
  2. PREDNISOLONE [Concomitant]
     Active Substance: PREDNISOLONE
     Indication: Immunosuppression
     Dosage: 1 MG/KG, QD
     Route: 054
     Dates: start: 20221229
  3. FAMOTIDINE [Concomitant]
     Active Substance: FAMOTIDINE
     Indication: Gastrointestinal disorder prophylaxis
     Dosage: 0.5 MG/KG, BID (FORMULATION: SUSPENSION)
     Route: 048
     Dates: start: 20221229

REACTIONS (10)
  - Thrombocytopenia [Recovered/Resolved]
  - Apnoea [Recovered/Resolved]
  - Platelet count decreased [Unknown]
  - Aspiration [Recovered/Resolved]
  - Monocyte count increased [Recovered/Resolved]
  - Abdominal distension [Recovered/Resolved]
  - Aspartate aminotransferase increased [Recovered/Resolved]
  - Troponin I increased [Recovered/Resolved]
  - Vomiting [Recovered/Resolved]
  - Pyrexia [Recovered/Resolved]

NARRATIVE: CASE EVENT DATE: 20230101
